FAERS Safety Report 22388472 (Version 2)
Quarter: 2023Q2

REPORT INFORMATION
  Report Type: Spontaneous
  Country: GR (occurrence: GR)
  Receive Date: 20230531
  Receipt Date: 20230531
  Transmission Date: 20230721
  Serious: Yes (Hospitalization, Other)
  Sender: FDA-Public Use
  Company Number: GR-PFIZER INC-PV202300091899

PATIENT
  Age: 21 Year
  Sex: Female

DRUGS (3)
  1. SPIRONOLACTONE [Suspect]
     Active Substance: SPIRONOLACTONE
     Indication: Cardiomyopathy
     Dosage: 12.5 MG, 2X/DAY
  2. PROPRANOLOL [Suspect]
     Active Substance: PROPRANOLOL HYDROCHLORIDE
     Indication: Cardiomyopathy
     Dosage: 20 MG X 2
  3. PERINDOPRIL [Suspect]
     Active Substance: PERINDOPRIL
     Indication: Cardiomyopathy
     Dosage: 2.5 MG X 2

REACTIONS (3)
  - Ventricular tachycardia [Unknown]
  - Left ventricular dysfunction [Unknown]
  - Abdominal pain [Unknown]
